FAERS Safety Report 5068055-1 (Version None)
Quarter: 2006Q3

REPORT INFORMATION
  Report Type: 
  Country: None (occurrence: None)
  Receive Date: 20060731
  Receipt Date: 20060719
  Transmission Date: 20061208
  Serious: Yes (Other)
  Sender: FDA-Public Use
  Company Number: 2006070039

PATIENT
  Age: 51 Year
  Sex: Male

DRUGS (1)
  1. ASTELIN [Suspect]
     Indication: SEASONAL ALLERGY
     Dosage: 2 SP BID, IN   SEVERAL YEARS AGO
     Route: 055

REACTIONS (1)
  - GRAND MAL CONVULSION [None]
